FAERS Safety Report 7324602-8 (Version None)
Quarter: 2011Q1

REPORT INFORMATION
  Report Type: 
  Country: None (occurrence: None)
  Receive Date: 20110218
  Receipt Date: 20110204
  Transmission Date: 20110831
  Serious: Yes (Life-Threatening, Hospitalization)
  Sender: FDA-Public Use
  Company Number: JPI-P-013793

PATIENT
  Age: 53 Year
  Sex: Female

DRUGS (1)
  1. XYREM [Suspect]
     Indication: CATAPLEXY
     Dosage: (,2 IN 1 D),ORAL, 7.5 GM (3.75 GM, 2 IN 1 D),ORAL, 10 GM (5 GM,2 IN 1 D),ORAL
     Route: 048
     Dates: start: 20050510

REACTIONS (3)
  - CATAPLEXY [None]
  - ALOPECIA [None]
  - MYOCARDIAL INFARCTION [None]
